FAERS Safety Report 6181083-8 (Version None)
Quarter: 2009Q2

REPORT INFORMATION
  Report Type: 
  Country: None (occurrence: None)
  Receive Date: 20090501
  Receipt Date: 20090114
  Transmission Date: 20091009
  Serious: Yes (Other)
  Sender: FDA-Public Use
  Company Number: 000534

PATIENT

DRUGS (12)
  1. PARACETAMOL WITH CODEINE PHOSPHATE (CODEINE PHOSPHATE AND PARACETAMOL) [Suspect]
     Dosage: (MORE THAN 8 TABLETS OF CODEINE 30 MG AND PARACETAMOL 500 MG IN COMBINATION DAILY ORAL)
     Route: 048
  2. MORPHINE SULFATE [Concomitant]
  3. PENICILLAMINE [Concomitant]
  4. PREDNISOLONE [Concomitant]
  5. PROPRANOLOL [Concomitant]
  6. PIZOTIFEN [Concomitant]
  7. PROTHIADEN [Concomitant]
  8. VITAMIN D [Concomitant]
  9. VITAMIN B6 [Concomitant]
  10. VERAPAMIL [Concomitant]
  11. LISINOPRIL [Concomitant]
  12. BETHISTINE [Concomitant]

REACTIONS (4)
  - DEAFNESS BILATERAL [None]
  - DEAFNESS NEUROSENSORY [None]
  - MEAN CELL VOLUME INCREASED [None]
  - VERTIGO [None]
